FAERS Safety Report 4639362-9 (Version None)
Quarter: 2005Q2

REPORT INFORMATION
  Report Type: 
  Country: None (occurrence: None)
  Receive Date: 20050418
  Receipt Date: 20050405
  Transmission Date: 20051028
  Serious: Yes (Disabling)
  Sender: FDA-Public Use
  Company Number: 2005-BP-05675YA

PATIENT
  Age: 67 Year
  Sex: Male

DRUGS (4)
  1. TAMSULOSIN HYDROCHLORIDE (NR) [Suspect]
     Indication: BENIGN PROSTATIC HYPERPLASIA
     Dosage: 0.4 MG PO
     Route: 048
     Dates: start: 20050119, end: 20050303
  2. LANSOPRAZOLE (NR) [Concomitant]
  3. BECLOMETASONE (BECLOMETASONE) (NR) [Concomitant]
  4. SALBUTAMOL (SALBUTAMOL) (NR) [Concomitant]

REACTIONS (1)
  - ATRIAL FIBRILLATION [None]
